FAERS Safety Report 6392190-9 (Version None)
Quarter: 2009Q4

REPORT INFORMATION
  Report Type: 
  Country: None (occurrence: None)
  Receive Date: 20091005
  Receipt Date: 20090928
  Transmission Date: 20100525
  Serious: Yes (Death)
  Sender: FDA-Public Use
  Company Number: 2008SP016939

PATIENT
  Age: 50 Year
  Sex: Male

DRUGS (6)
  1. POSACONAZOLE [Suspect]
     Indication: FUNGAL INFECTION
     Dosage: 400 MG; BID; PO
     Route: 048
     Dates: start: 20051026, end: 20060118
  2. KEPPRA [Concomitant]
  3. AMPHOTERICIN B [Concomitant]
  4. CANDESARTAN CILEXETIL [Concomitant]
  5. FLUCYTOSINE [Concomitant]
  6. VORICONAZOLE [Concomitant]

REACTIONS (7)
  - INCISION SITE ABSCESS [None]
  - LYMPHADENOPATHY [None]
  - METASTASIS [None]
  - RECURRENT CANCER [None]
  - SKIN EXFOLIATION [None]
  - SQUAMOUS CELL CARCINOMA [None]
  - WOUND INFECTION [None]
